FAERS Safety Report 9821000 (Version 2)
Quarter: 2014Q1

REPORT INFORMATION
  Report Type: Report from Study
  Country: ZA (occurrence: ZA)
  Receive Date: 20140116
  Receipt Date: 20140116
  Transmission Date: 20141002
  Serious: Yes (Other)
  Sender: FDA-Public Use
  Company Number: ZA-BRISTOL-MYERS SQUIBB COMPANY-18849695

PATIENT
  Age: 34 Year
  Sex: Female

DRUGS (5)
  1. STOCRIN TABS 600 MG [Suspect]
     Route: 048
     Dates: start: 20121130
  2. EDURANT [Suspect]
     Route: 048
     Dates: start: 20081203, end: 20121130
  3. LAMIVUDINE [Suspect]
     Dosage: REG1
     Route: 048
     Dates: start: 20121130
  4. TRUVADA [Suspect]
     Dosage: 1 DF = 1 TABLET DAILY?FROM 30NOV12 300 MG,DAILY ORAL, ONGOING
     Route: 048
     Dates: start: 20081203
  5. TENOFOVIR DISOPROXIL FUMARATE [Suspect]
     Dosage: REG1
     Route: 048
     Dates: start: 20121130

REACTIONS (2)
  - Abortion spontaneous [Recovered/Resolved]
  - Pregnancy [Recovered/Resolved]
